FAERS Safety Report 15709556 (Version 2)
Quarter: 2019Q1

REPORT INFORMATION
  Report Type: Spontaneous
  Country: SI (occurrence: SI)
  Receive Date: 20181211
  Receipt Date: 20190114
  Transmission Date: 20190417
  Serious: Yes (Hospitalization, Other)
  Sender: FDA-Public Use
  Company Number: SI-BAYER-2018-228092

PATIENT
  Age: 67 Year
  Sex: Male

DRUGS (11)
  1. ASPIRIN PROTECT 100 MG [Suspect]
     Active Substance: ASPIRIN
     Indication: ANTIPLATELET THERAPY
     Dosage: UNK
     Dates: end: 2017
  2. AMLODIPINE [Concomitant]
     Active Substance: AMLODIPINE BESYLATE
     Dosage: 5 MG, UNK
  3. BISOPROLOL [Concomitant]
     Active Substance: BISOPROLOL
     Dosage: 5 MG, UNK
  4. RIVAROXABAN [Concomitant]
     Active Substance: RIVAROXABAN
  5. METFORMIN [Concomitant]
     Active Substance: METFORMIN HYDROCHLORIDE
     Dosage: 1000 MG, UNK
  6. CLOPIDOGREL [Concomitant]
     Active Substance: CLOPIDOGREL BISULFATE
     Dosage: 75 MG, UNK
  7. PERINDOPRIL + INDAPAMIDA CINFA [Concomitant]
  8. GLICLAZIDE [Concomitant]
     Active Substance: GLICLAZIDE
     Dosage: 120 MG, UNK
  9. ATORVASTATIN [Concomitant]
     Active Substance: ATORVASTATIN
     Dosage: 40 MG, UNK
  10. INDAPAMIDE;PERINDOPRIL [Concomitant]
  11. TICAGRELOR. [Concomitant]
     Active Substance: TICAGRELOR
     Dosage: 75 MG, UNK
     Dates: end: 201610

REACTIONS (7)
  - Atrial fibrillation [Not Recovered/Not Resolved]
  - Palpitations [Not Recovered/Not Resolved]
  - Atrial thrombosis [Recovered/Resolved]
  - Coronary artery disease [None]
  - Acute myocardial infarction [None]
  - Malaise [Not Recovered/Not Resolved]
  - Treatment noncompliance [None]

NARRATIVE: CASE EVENT DATE: 2016
